FAERS Safety Report 23039529 (Version 2)
Quarter: 2024Q1

REPORT INFORMATION
  Report Type: Spontaneous
  Country: CZ (occurrence: CZ)
  Receive Date: 20231006
  Receipt Date: 20240209
  Transmission Date: 20240409
  Serious: Yes (Other)
  Sender: FDA-Public Use
  Company Number: CZ-SUN PHARMACEUTICAL INDUSTRIES LTD-2023RR-411173

PATIENT
  Age: 50 Year

DRUGS (6)
  1. OXALIPLATIN [Suspect]
     Active Substance: OXALIPLATIN
     Indication: Pancreatic carcinoma
     Dosage: 6 COURSES
     Route: 065
     Dates: start: 202101, end: 202104
  2. IRINOTECAN [Suspect]
     Active Substance: IRINOTECAN
     Indication: Pancreatic carcinoma
     Dosage: 6 COURSES
     Route: 065
     Dates: start: 202101, end: 202104
  3. LEUCOVORIN CALCIUM [Suspect]
     Active Substance: LEUCOVORIN CALCIUM
     Indication: Pancreatic carcinoma
     Dosage: UNK
     Route: 065
     Dates: start: 202101, end: 202104
  4. FLUOROURACIL [Suspect]
     Active Substance: FLUOROURACIL
     Indication: Pancreatic carcinoma
     Dosage: 6 COURSES
     Route: 065
     Dates: start: 202101, end: 202104
  5. GEMCITABINE [Suspect]
     Active Substance: GEMCITABINE
     Indication: Adenocarcinoma
     Dosage: UNK
     Route: 065
  6. PACLITAXEL [Suspect]
     Active Substance: PACLITAXEL
     Indication: Adenocarcinoma
     Dosage: UNK
     Route: 065

REACTIONS (3)
  - Disease progression [Unknown]
  - Pulmonary embolism [Unknown]
  - Thrombosis [Unknown]
